FAERS Safety Report 7107932-4 (Version None)
Quarter: 2010Q4

REPORT INFORMATION
  Report Type: 
  Country: None (occurrence: None)
  Receive Date: 20101117
  Receipt Date: 20101105
  Transmission Date: 20110411
  Serious: Yes (Hospitalization, Other)
  Sender: FDA-Public Use
  Company Number: JP-BAYER-201012103BYL

PATIENT
  Age: 64 Year
  Sex: Male
  Weight: 63 kg

DRUGS (19)
  1. NEXAVAR [Suspect]
     Indication: HEPATIC NEOPLASM MALIGNANT
     Dosage: TOTAL DAILY DOSE: 800 MG  UNIT DOSE: 200 MG
     Route: 048
     Dates: start: 20100413, end: 20100423
  2. OXYCONTIN [Concomitant]
     Indication: CANCER PAIN
     Dosage: UNIT DOSE: 5 MG
     Route: 048
     Dates: start: 20100513
  3. OXYCONTIN [Concomitant]
     Dosage: UNIT DOSE: 5 MG
     Route: 048
     Dates: start: 20100421, end: 20100512
  4. OXINORM [Concomitant]
     Indication: CANCER PAIN
     Dosage: TOTAL DAILY DOSE: 2.5 MG
     Route: 048
     Dates: start: 20100422
  5. NOVAMIN [Concomitant]
     Indication: PROPHYLAXIS OF NAUSEA AND VOMITING
     Dosage: UNIT DOSE: 5 MG
     Route: 048
     Dates: start: 20100422
  6. PORTOLAC [Concomitant]
     Indication: HYPERAMMONAEMIA
     Dosage: UNIT DOSE: 6 G
     Route: 048
     Dates: start: 20100423
  7. HEPAN ED [Concomitant]
     Indication: NUTRITIONAL SUPPORT
     Dosage: UNIT DOSE: 80 G
     Route: 048
     Dates: start: 20100501
  8. HEPAN ED [Concomitant]
     Dosage: UNIT DOSE: 80 G
     Route: 048
     Dates: start: 20100424, end: 20100425
  9. LASIX [Concomitant]
     Indication: ASCITES
     Dosage: UNIT DOSE: 20 MG
     Route: 048
     Dates: start: 20100512
  10. LASIX [Concomitant]
     Dosage: UNIT DOSE: 20 MG
     Route: 048
     Dates: start: 20100502, end: 20100511
  11. LASIX [Concomitant]
     Dosage: UNIT DOSE: 20 MG
     Route: 048
     Dates: start: 20100428, end: 20100501
  12. LOXONIN [Concomitant]
     Indication: CANCER PAIN
     Dosage: UNIT DOSE: 60 MG
     Route: 048
     Dates: start: 20080524
  13. THIATON [Concomitant]
     Indication: GASTRITIS
     Dosage: UNIT DOSE: 10 MG
     Route: 048
     Dates: start: 20080506
  14. URSO 250 [Concomitant]
     Indication: HEPATIC FUNCTION ABNORMAL
     Dosage: UNIT DOSE: 100 MG
     Route: 048
     Dates: start: 20080424
  15. TAKEPRON [Concomitant]
     Indication: PROPHYLAXIS AGAINST GASTROINTESTINAL ULCER
     Dosage: UNIT DOSE: 15 MG
     Route: 048
     Dates: start: 20080609
  16. MYSLEE [Concomitant]
     Indication: INSOMNIA
     Dosage: UNIT DOSE: 10 MG
     Route: 048
     Dates: start: 20100319
  17. MAGLAX [Concomitant]
     Indication: CONSTIPATION
     Dosage: 990-1980 MG A DAY
     Route: 048
     Dates: start: 20041023
  18. POSTERISAN [Concomitant]
     Indication: HAEMORRHOIDS
     Route: 061
     Dates: start: 20090615
  19. RESTAMIN [Concomitant]
     Indication: ECZEMA
     Route: 061
     Dates: start: 20081008

REACTIONS (4)
  - HEPATIC ENCEPHALOPATHY [None]
  - HEPATIC FAILURE [None]
  - HYPERTENSION [None]
  - PANCREATIC ENZYMES INCREASED [None]
